FAERS Safety Report 11857673 (Version 1)
Quarter: 2015Q4

REPORT INFORMATION
  Report Type: Spontaneous
  Country: US (occurrence: None)
  Receive Date: 20151221
  Receipt Date: 20151221
  Transmission Date: 20160305
  Serious: Yes (Life-Threatening, Disabling, Other)
  Sender: FDA-Public Use
  Company Number: None

PATIENT
  Age: 87 Year
  Sex: Female

DRUGS (1)
  1. ENOXAPARIN [Suspect]
     Active Substance: ENOXAPARIN
     Indication: PULMONARY EMBOLISM
     Dosage: SUBCUTANEOUS 057, INJECTABLE, TWICE DAILY
     Route: 058
     Dates: start: 201502, end: 201512

REACTIONS (2)
  - Device malfunction [None]
  - Underdose [None]

NARRATIVE: CASE EVENT DATE: 20151215
